APPROVED DRUG PRODUCT: QNASL
Active Ingredient: BECLOMETHASONE DIPROPIONATE
Strength: 0.04MG/ACTUATION
Dosage Form/Route: AEROSOL, METERED;NASAL
Application: N202813 | Product #002
Applicant: TEVA BRANDED PHARMACEUTICAL PRODUCTS R AND D LLC
Approved: Dec 17, 2014 | RLD: Yes | RS: No | Type: RX

PATENTS:
Patent 10188811 | Expires: Oct 21, 2031